APPROVED DRUG PRODUCT: GANCICLOVIR SODIUM
Active Ingredient: GANCICLOVIR SODIUM
Strength: EQ 500MG BASE/VIAL
Dosage Form/Route: INJECTABLE;INJECTION
Application: A202624 | Product #001
Applicant: AMERICAN REGENT INC
Approved: Sep 18, 2013 | RLD: No | RS: No | Type: DISCN